FAERS Safety Report 6718728-7 (Version None)
Quarter: 2010Q2

REPORT INFORMATION
  Report Type: 
  Country: None (occurrence: None)
  Receive Date: 20100505
  Receipt Date: 20100421
  Transmission Date: 20101027
  Serious: Yes (Life-Threatening, Hospitalization, Other)
  Sender: FDA-Public Use
  Company Number: 2010-00463

PATIENT
  Age: 60 Year
  Sex: Female
  Weight: 60 kg

DRUGS (11)
  1. CEFTRIAXONE [Suspect]
     Indication: ARTHRITIS
     Dosage: INTRAVENOUS
     Route: 042
     Dates: start: 20100401
  2. CEFTRIAXONE [Suspect]
     Indication: CELLULITIS
     Dosage: INTRAVENOUS
     Route: 042
     Dates: start: 20100401
  3. MEROPENEM [Suspect]
     Indication: ARTHRITIS
     Dosage: INTRAVENOUS
     Route: 042
     Dates: start: 20100403, end: 20100410
  4. MEROPENEM [Suspect]
     Indication: CELLULITIS
     Dosage: INTRAVENOUS
     Route: 042
     Dates: start: 20100403, end: 20100410
  5. BUMETANIDE [Concomitant]
  6. HEPARIN [Concomitant]
  7. METOLAZONE [Concomitant]
  8. OMEPRAZOLE [Concomitant]
  9. RAMIPRIL [Concomitant]
  10. SERETIDE (FLUTICASONE PROPIONATE MICRONISED+ SALMETEROL XINAFOATE MICR [Concomitant]
  11. TIOTROPIUM BROMIDE [Concomitant]

REACTIONS (4)
  - ACUTE GENERALISED EXANTHEMATOUS PUSTULOSIS [None]
  - BLOOD PRESSURE DECREASED [None]
  - HYPERSENSITIVITY [None]
  - SKIN NECROSIS [None]
